FAERS Safety Report 25370590 (Version 3)
Quarter: 2025Q4

REPORT INFORMATION
  Report Type: Report from Study
  Country: US (occurrence: US)
  Receive Date: 20250528
  Receipt Date: 20251001
  Transmission Date: 20260118
  Serious: No
  Sender: TRAVERE THERAPEUTICS
  Company Number: US-TRAVERE-2025TVT00768

PATIENT
  Age: 47 Year
  Sex: Female
  Weight: 65.77 kg

DRUGS (8)
  1. FILSPARI [Suspect]
     Active Substance: SPARSENTAN
     Indication: IgA nephropathy
     Route: 048
     Dates: start: 20240830
  2. FILSPARI [Suspect]
     Active Substance: SPARSENTAN
     Route: 048
     Dates: start: 20241205
  3. DAPAGLIFLOZIN PROPANEDIOL [Concomitant]
     Active Substance: DAPAGLIFLOZIN PROPANEDIOL
  4. FINERENONE [Concomitant]
     Active Substance: FINERENONE
  5. LEVOTHYROXINE [Concomitant]
     Active Substance: LEVOTHYROXINE
  6. LOSARTAN [Concomitant]
     Active Substance: LOSARTAN
  7. VITAMINS [Concomitant]
     Active Substance: VITAMINS
  8. KERENDIA [Concomitant]
     Active Substance: FINERENONE

REACTIONS (3)
  - Blood creatinine increased [Unknown]
  - Urine protein/creatinine ratio increased [Recovering/Resolving]
  - Contraindicated product administered [Unknown]

NARRATIVE: CASE EVENT DATE: 20250226
